FAERS Safety Report 9258863 (Version 2)
Quarter: 2013Q2

REPORT INFORMATION
  Report Type: Spontaneous
  Country: US (occurrence: US)
  Receive Date: 20130426
  Receipt Date: 20130514
  Transmission Date: 20140414
  Serious: Yes (Death)
  Sender: FDA-Public Use
  Company Number: US-GLAXOSMITHKLINE-A1021447A

PATIENT
  Age: 74 Year
  Sex: Male

DRUGS (1)
  1. ARIXTRA [Suspect]
     Indication: PRODUCT USED FOR UNKNOWN INDICATION
     Dosage: 7.5MG UNKNOWN
     Route: 058
     Dates: start: 20130206

REACTIONS (1)
  - Prostate cancer metastatic [Fatal]
